FAERS Safety Report 4685600-6 (Version None)
Quarter: 2005Q2

REPORT INFORMATION
  Report Type: 
  Country: None (occurrence: None)
  Receive Date: 20050608
  Receipt Date: 20050524
  Transmission Date: 20051028
  Serious: Yes (Hospitalization)
  Sender: FDA-Public Use
  Company Number: 144-20785-05060022

PATIENT
  Age: 27 Year
  Sex: Female

DRUGS (3)
  1. THALIDOMIDE - PHARMION (THALIDOMIDE) (50 MILLIGRAM, CAPSULES) [Suspect]
     Indication: ANGIOSARCOMA
     Dosage: 400 MG , DAILY ORAL
     Route: 048
     Dates: start: 20050425, end: 20050512
  2. NOLVADEX [Suspect]
     Indication: ANGIOSARCOMA
     Dosage: 40 MG DAILY
     Dates: end: 20050512
  3. GEMCITABINE (GEMCITABINE) [Concomitant]

REACTIONS (3)
  - ARTERIAL THROMBOSIS [None]
  - FIBRIN D DIMER INCREASED [None]
  - HAEMOPTYSIS [None]
